FAERS Safety Report 5902716-4 (Version None)
Quarter: 2008Q3

REPORT INFORMATION
  Report Type: 
  Country: None (occurrence: None)
  Receive Date: 20080929
  Receipt Date: 20080929
  Transmission Date: 20090109
  Serious: No
  Sender: FDA-Public Use
  Company Number: None

PATIENT
  Age: 72 Year
  Sex: Female
  Weight: 61.2356 kg

DRUGS (1)
  1. PAMIDRONATE DISODIUM [Suspect]
     Indication: OSTEOPOROSIS
     Dosage: 60 MG 4 TIMES YEARLY NOVARTIS DRUG CO. 1 1/2 YEARS - 4 TIMES A YEAR AT 3 TO 4 HRS EACH

REACTIONS (1)
  - OSTEONECROSIS [None]
